FAERS Safety Report 4985115-1 (Version None)
Quarter: 2006Q1

REPORT INFORMATION
  Report Type: 
  Country: None (occurrence: None)
  Receive Date: 20060309
  Receipt Date: 20050901
  Transmission Date: 20060701
  Serious: Yes (Other)
  Sender: FDA-Public Use
  Company Number: 416417

PATIENT

DRUGS (3)
  1. ISOTRETINOIN [Suspect]
     Indication: ACNE
     Dosage: 40 MG 2 PER DAY ORAL
     Route: 048
     Dates: start: 20050714, end: 20050830
  2. ISOTRETINOIN [Suspect]
     Indication: NODULE
     Dosage: 40 MG 2 PER DAY ORAL
     Route: 048
     Dates: start: 20050714, end: 20050830
  3. ORTHO TRI-CYCLEN [Concomitant]

REACTIONS (1)
  - PREGNANCY [None]
